FAERS Safety Report 6973736-6 (Version None)
Quarter: 2010Q3

REPORT INFORMATION
  Report Type: 
  Country: None (occurrence: None)
  Receive Date: 20100909
  Receipt Date: 20100901
  Transmission Date: 20110219
  Serious: Yes (Hospitalization)
  Sender: FDA-Public Use
  Company Number: A0780399A

PATIENT
  Age: 48 Year
  Sex: Female
  Weight: 80.9 kg

DRUGS (7)
  1. AVANDIA [Suspect]
     Indication: DIABETES MELLITUS
     Dosage: 2MG TWICE PER DAY
     Route: 048
     Dates: start: 20050101
  2. AVANDAMET [Suspect]
     Indication: DIABETES MELLITUS
     Dates: start: 20050101
  3. ALTACE [Concomitant]
  4. COREG [Concomitant]
  5. INSPRA [Concomitant]
  6. PLAVIX [Concomitant]
  7. COUMADIN [Concomitant]

REACTIONS (4)
  - ARTERIOSCLEROSIS CORONARY ARTERY [None]
  - DEEP VEIN THROMBOSIS [None]
  - DEPRESSION [None]
  - MYOCARDIAL INFARCTION [None]
